FAERS Safety Report 12700462 (Version 1)
Quarter: 2016Q3

REPORT INFORMATION
  Report Type: Spontaneous
  Country: US (occurrence: US)
  Receive Date: 20160830
  Receipt Date: 20160830
  Transmission Date: 20161109
  Serious: No
  Sender: FDA-Public Use
  Company Number: US-SA-2016SA049477

PATIENT
  Age: 56 Year
  Sex: Male

DRUGS (9)
  1. FABRAZYME [Suspect]
     Active Substance: AGALSIDASE BETA
     Indication: FABRY^S DISEASE
     Route: 041
  2. LIPITOR [Concomitant]
     Active Substance: ATORVASTATIN CALCIUM
  3. LASIX [Concomitant]
     Active Substance: FUROSEMIDE
  4. TYLENOL [Concomitant]
     Active Substance: ACETAMINOPHEN
  5. NORVASC [Concomitant]
     Active Substance: AMLODIPINE BESYLATE
  6. CLONIDINE. [Concomitant]
     Active Substance: CLONIDINE
  7. BENADRYL [Concomitant]
     Active Substance: DIPHENHYDRAMINE HYDROCHLORIDE
     Dosage: DOSE: 12.5
  8. VITAMINS [Concomitant]
     Active Substance: VITAMINS
  9. ASPIRIN. [Concomitant]
     Active Substance: ASPIRIN

REACTIONS (4)
  - Dizziness [Not Recovered/Not Resolved]
  - Gait disturbance [Not Recovered/Not Resolved]
  - Hypotension [Not Recovered/Not Resolved]
  - Abdominal pain upper [Not Recovered/Not Resolved]

NARRATIVE: CASE EVENT DATE: 20160304
